FAERS Safety Report 10210255 (Version 1)
Quarter: 2014Q2

REPORT INFORMATION
  Report Type: Spontaneous
  Country: US (occurrence: US)
  Receive Date: 20140602
  Receipt Date: 20140602
  Transmission Date: 20141212
  Serious: No
  Sender: FDA-Public Use
  Company Number: US-PFIZER INC-2014148061

PATIENT
  Age: 71 Year
  Sex: Female
  Weight: 72.11 kg

DRUGS (3)
  1. LYRICA [Suspect]
     Indication: PAIN
     Dosage: UNK, 3X/DAY
     Route: 048
  2. LYRICA [Suspect]
     Dosage: UNK, (FOUR TIMES A DAY INSTEAD OF THREE TIMES A DAY 2 TO 3 TIMES IN A WEEK)
     Route: 048
     Dates: start: 20140510
  3. HYDROCODONE [Concomitant]
     Dosage: UNK

REACTIONS (2)
  - Drug ineffective [Unknown]
  - Intentional product misuse [Unknown]
